FAERS Safety Report 5718332-3 (Version None)
Quarter: 2008Q2

REPORT INFORMATION
  Report Type: 
  Country: None (occurrence: None)
  Receive Date: 20080425
  Receipt Date: 20080423
  Transmission Date: 20081010
  Serious: Yes (Death)
  Sender: FDA-Public Use
  Company Number: US-ASTRAZENECA-2008UW08387

PATIENT
  Age: 26 Year
  Sex: Male

DRUGS (3)
  1. SEROQUEL [Suspect]
     Indication: BIPOLAR DISORDER
     Dosage: 300 MG IN MORNING, 600 MG AT BEDTIME
     Route: 048
  2. PAXIL [Concomitant]
  3. LITHIUM CARBONATE [Concomitant]

REACTIONS (1)
  - COMPLETED SUICIDE [None]
